FAERS Safety Report 11653199 (Version 1)
Quarter: 2015Q4

REPORT INFORMATION
  Report Type: Spontaneous
  Country: US (occurrence: US)
  Receive Date: 20151022
  Receipt Date: 20151022
  Transmission Date: 20160304
  Serious: No
  Sender: FDA-Public Use
  Company Number: GXBR2015US001967

PATIENT
  Age: 87 Year
  Sex: Male
  Weight: 53.61 kg

DRUGS (3)
  1. CHOLESTYRAMINE FOR ORAL SUSPENSION USP [Suspect]
     Active Substance: CHOLESTYRAMINE
     Indication: DIARRHOEA
     Dosage: 1 SCOOP, BID
     Route: 048
  2. FLOMAX [Concomitant]
     Active Substance: TAMSULOSIN HYDROCHLORIDE
     Dosage: UNK DF, UNK
  3. CARBIDOPA LEVODOPA [Concomitant]
     Active Substance: CARBIDOPA\LEVODOPA
     Indication: PARKINSON^S DISEASE
     Dosage: UNK DF, UNK

REACTIONS (2)
  - Off label use [Not Recovered/Not Resolved]
  - Speech disorder [Recovered/Resolved]
